FAERS Safety Report 7810522-9 (Version None)
Quarter: 2011Q4

REPORT INFORMATION
  Report Type: 
  Country: None (occurrence: None)
  Receive Date: 20111013
  Receipt Date: 20110929
  Transmission Date: 20120403
  Serious: Yes (Death)
  Sender: FDA-Public Use
  Company Number: US-ROCHE-1000061

PATIENT
  Age: 66 Year
  Sex: Male

DRUGS (2)
  1. PREDNISOLONE [Concomitant]
     Indication: PEMPHIGUS
     Route: 048
  2. MYCOPHENOLATE MOFETIL [Suspect]
     Indication: PEMPHIGUS
     Route: 048

REACTIONS (1)
  - STRONGYLOIDIASIS [None]
